FAERS Safety Report 24860913 (Version 1)
Quarter: 2025Q1

REPORT INFORMATION
  Report Type: Report from Study
  Country: US (occurrence: US)
  Receive Date: 20250120
  Receipt Date: 20250120
  Transmission Date: 20250408
  Serious: Yes (Other)
  Sender: ALEXION PHARMACEUTICALS
  Company Number: US-AstraZeneca-202501USA012554US

PATIENT
  Age: 68 Year

DRUGS (1)
  1. OLAPARIB [Suspect]
     Active Substance: OLAPARIB
     Indication: Pancreatic carcinoma
     Dosage: 150 MILLIGRAM, QD

REACTIONS (6)
  - Haematochezia [Unknown]
  - Myalgia [Unknown]
  - Bone pain [Unknown]
  - Hypoaesthesia [Unknown]
  - Dyspnoea [Unknown]
  - Therapy change [Unknown]
